FAERS Safety Report 6812167-6 (Version None)
Quarter: 2010Q3

REPORT INFORMATION
  Report Type: 
  Country: None (occurrence: None)
  Receive Date: 20100701
  Receipt Date: 20100622
  Transmission Date: 20110219
  Serious: Yes (Other)
  Sender: FDA-Public Use
  Company Number: BE-ASTRAZENECA-2010SE29285

PATIENT
  Sex: Female

DRUGS (1)
  1. ZOLADEX [Suspect]
     Dosage: DURING THREE MONTHS
     Route: 058
     Dates: start: 20090801

REACTIONS (2)
  - ABORTION MISSED [None]
  - DRUG EXPOSURE DURING PREGNANCY [None]
